FAERS Safety Report 9452879 (Version 1)
Quarter: 2013Q3

REPORT INFORMATION
  Report Type: Spontaneous
  Country: US (occurrence: US)
  Receive Date: 20130812
  Receipt Date: 20130812
  Transmission Date: 20140515
  Serious: Yes (Hospitalization)
  Sender: FDA-Public Use
  Company Number: US-PFIZER INC-2013229163

PATIENT
  Age: 79 Year
  Sex: Female
  Weight: 65.76 kg

DRUGS (7)
  1. REVATIO [Suspect]
     Indication: PULMONARY HYPERTENSION
     Dosage: UNK, 3X/DAY
     Dates: start: 201007, end: 20130712
  2. FUROSEMIDE [Suspect]
     Indication: FLUID RETENTION
     Dosage: 80 MG, 1X/DAY
     Dates: start: 2013
  3. FUROSEMIDE [Suspect]
     Indication: SWELLING
  4. BENAZEPRIL [Concomitant]
     Indication: HYPERTENSION
     Dosage: 40 MG, 1X/DAY
  5. SPIRONOLACTONE [Concomitant]
     Indication: HYPERTENSION
     Dosage: 25 MG, 1X/DAY
  6. GLIPIZIDE [Concomitant]
     Indication: DIABETES MELLITUS
     Dosage: 10 MG, 1X/DAY
     Route: 048
  7. LANTUS [Concomitant]
     Indication: DIABETES MELLITUS
     Dosage: 15 IU, 1X/DAY

REACTIONS (3)
  - Swelling [Unknown]
  - Fluid retention [Unknown]
  - Weight decreased [Unknown]
